FAERS Safety Report 17362016 (Version 3)
Quarter: 2020Q2

REPORT INFORMATION
  Report Type: Spontaneous
  Country: US (occurrence: US)
  Receive Date: 20200203
  Receipt Date: 20200402
  Transmission Date: 20200713
  Serious: No
  Sender: FDA-Public Use
  Company Number: US-KYOWAKIRIN-2020BKK001183

PATIENT

DRUGS (1)
  1. CRYSVITA [Suspect]
     Active Substance: BUROSUMAB-TWZA
     Indication: HEREDITARY HYPOPHOSPHATAEMIC RICKETS
     Dosage: 30 MG, 1X/2 WEEKS
     Route: 058
     Dates: start: 20191230

REACTIONS (3)
  - Restless legs syndrome [Not Recovered/Not Resolved]
  - Therapy non-responder [Unknown]
  - Injection site rash [Unknown]
